FAERS Safety Report 14616967 (Version 1)
Quarter: 2018Q1

REPORT INFORMATION
  Report Type: Spontaneous
  Country: US (occurrence: US)
  Receive Date: 20180308
  Receipt Date: 20180308
  Transmission Date: 20180509
  Serious: No
  Sender: FDA-Public Use
  Company Number: None

PATIENT
  Age: 13 Year
  Sex: Male

DRUGS (1)
  1. NUTROPIN AQ NUSPIN 10 [Suspect]
     Active Substance: SOMATROPIN

REACTIONS (6)
  - Syringe issue [None]
  - Incorrect drug administration rate [None]
  - Injection site urticaria [None]
  - Injection site discomfort [None]
  - Injection site bruising [None]
  - Injection site pain [None]

NARRATIVE: CASE EVENT DATE: 20180307
